FAERS Safety Report 4791021-8 (Version None)
Quarter: 2005Q4

REPORT INFORMATION
  Report Type: 
  Country: None (occurrence: None)
  Receive Date: 20051005
  Receipt Date: 20050929
  Transmission Date: 20060501
  Serious: Yes (Death)
  Sender: FDA-Public Use
  Company Number: 163-20785-05080339

PATIENT
  Age: 74 Year
  Sex: Female

DRUGS (13)
  1. THALOMID [Suspect]
     Indication: MULTIPLE MYELOMA
     Dosage: SEE IMAGE
     Route: 048
     Dates: start: 20050729, end: 20050809
  2. THALOMID [Suspect]
     Indication: MULTIPLE MYELOMA
     Dosage: SEE IMAGE
     Route: 048
     Dates: start: 20030618
  3. ACETYLSALICYLIC ACID SRT [Concomitant]
  4. FOLIC ACID [Concomitant]
  5. PROTONIX [Concomitant]
  6. LOPRESSOR [Concomitant]
  7. DIGOXIN [Concomitant]
  8. POTASSIUM (POTASSIUM) [Concomitant]
  9. DIOVAN [Concomitant]
  10. SYNTHROID [Concomitant]
  11. LASIX [Concomitant]
  12. SENOKOT [Concomitant]
  13. DECADRON [Concomitant]

REACTIONS (1)
  - CARDIAC DISORDER [None]
